FAERS Safety Report 26154961 (Version 1)
Quarter: 2025Q4

REPORT INFORMATION
  Report Type: Spontaneous
  Country: CN (occurrence: CN)
  Receive Date: 20251215
  Receipt Date: 20251215
  Transmission Date: 20260118
  Serious: Yes (Other)
  Sender: MITSUBISHI TANABE PHARMA
  Company Number: CN-TANABE_PHARMA-MTPC2025-0021772

PATIENT
  Age: 60 Year
  Sex: Female

DRUGS (9)
  1. EDARAVONE [Suspect]
     Active Substance: EDARAVONE
     Indication: Oxygen therapy
     Route: 065
  2. ASPIRIN [Concomitant]
     Active Substance: ASPIRIN
     Indication: Antiplatelet therapy
     Dosage: 100 MILLIGRAM
     Route: 065
  3. BUTYLPHTHALIDE [Concomitant]
     Active Substance: BUTYLPHTHALIDE
     Indication: Cerebrovascular disorder
     Route: 065
  4. CLOPIDOGREL BISULFATE [Concomitant]
     Active Substance: CLOPIDOGREL BISULFATE
     Indication: Antiplatelet therapy
     Dosage: 75 MILLIGRAM
     Route: 065
  5. DEXAMETHASONE [Concomitant]
     Active Substance: DEXAMETHASONE
     Indication: Oxygen therapy
     Route: 065
  6. DOXYCYCLINE [Concomitant]
     Active Substance: DOXYCYCLINE
     Indication: Antibiotic therapy
     Dosage: 0.1 GRAM, BID
     Route: 048
  7. GLUTATHIONE [Concomitant]
     Active Substance: GLUTATHIONE
     Indication: Drug therapy
     Dosage: 1.2 GRAM, QD
     Route: 065
  8. MOXIFLOXACIN HYDROCHLORIDE [Concomitant]
     Active Substance: MOXIFLOXACIN HYDROCHLORIDE
     Indication: Antibiotic therapy
     Dosage: 0.4 GRAM, QD
     Route: 042
  9. OMADACYCLINE [Concomitant]
     Active Substance: OMADACYCLINE
     Indication: Antibiotic therapy
     Dosage: 0.1 GRAM, QD
     Route: 042

REACTIONS (2)
  - Pleural effusion [Recovering/Resolving]
  - Cerebral artery stenosis [Recovering/Resolving]
